FAERS Safety Report 21359371 (Version 1)
Quarter: 2022Q3

REPORT INFORMATION
  Report Type: Spontaneous
  Country: US (occurrence: US)
  Receive Date: 20220921
  Receipt Date: 20220921
  Transmission Date: 20221027
  Serious: Yes (Death, Hospitalization, Other)
  Sender: FDA-Public Use
  Company Number: US-PFIZER INC-202201151067

PATIENT
  Age: 6 Year

DRUGS (1)
  1. DOXYCYCLINE HYCLATE [Suspect]
     Active Substance: DOXYCYCLINE HYCLATE
     Indication: Rocky mountain spotted fever
     Dosage: UNK
     Route: 042
     Dates: start: 20000713

REACTIONS (1)
  - Gangrene [Fatal]

NARRATIVE: CASE EVENT DATE: 20000701
